FAERS Safety Report 10715329 (Version 5)
Quarter: 2016Q2

REPORT INFORMATION
  Report Type: Spontaneous
  Country: FR (occurrence: FR)
  Receive Date: 20150116
  Receipt Date: 20160509
  Transmission Date: 20160815
  Serious: Yes (Other)
  Sender: FDA-Public Use
  Company Number: FR-ORION CORPORATION ORION PHARMA-ENTC2015-0015

PATIENT
  Age: 70 Year
  Sex: Male
  Weight: 85 kg

DRUGS (5)
  1. STALEVO [Suspect]
     Active Substance: CARBIDOPA\ENTACAPONE\LEVODOPA
     Dosage: STRENGTH: 75/18.75/200 MG
     Route: 048
  2. STALEVO [Suspect]
     Active Substance: CARBIDOPA\ENTACAPONE\LEVODOPA
     Dosage: STRENGTH: 200/50/200 MG
     Route: 048
  3. NEUPRO [Concomitant]
     Active Substance: ROTIGOTINE
     Route: 065
  4. STALEVO [Suspect]
     Active Substance: CARBIDOPA\ENTACAPONE\LEVODOPA
     Indication: PARKINSON^S DISEASE
     Dosage: STRENGTH: 100/25/200 MG
     Route: 048
     Dates: start: 200608
  5. COMTAN [Suspect]
     Active Substance: ENTACAPONE
     Route: 065
     Dates: start: 2006

REACTIONS (11)
  - Dysstasia [Unknown]
  - Nasal discharge discolouration [Unknown]
  - Confusional state [Unknown]
  - Constipation [Unknown]
  - Nocturia [Unknown]
  - Prostate cancer [Unknown]
  - Salivary hypersecretion [Unknown]
  - Skin burning sensation [Unknown]
  - Hallucination, visual [Not Recovered/Not Resolved]
  - Fall [Unknown]
  - Burning sensation mucosal [Unknown]

NARRATIVE: CASE EVENT DATE: 2007
